FAERS Safety Report 8512629-X (Version None)
Quarter: 2012Q2

REPORT INFORMATION
  Report Type: 
  Country: None (occurrence: None)
  Receive Date: 20120405
  Receipt Date: 20080826
  Transmission Date: 20120825
  Serious: Yes (Other)
  Sender: FDA-Public Use
  Company Number: PHEH2008US07533

PATIENT
  Age: 58 Year
  Sex: Female
  Weight: 43.1 kg

DRUGS (4)
  1. MAGNESIUM (MAGNESIUM) [Concomitant]
  2. CALCIUM CARBONATE [Concomitant]
  3. RECLAST [Suspect]
     Indication: OSTEOPOROSIS
     Dosage: 5 MG, ONCE/SINGLE, INFUSION
     Dates: start: 20080820
  4. VITAMIN B COMPLEX CAP [Concomitant]

REACTIONS (5)
  - CHEST PAIN [None]
  - BACK PAIN [None]
  - BONE PAIN [None]
  - DYSPNOEA [None]
  - FEELING ABNORMAL [None]
